FAERS Safety Report 9799514 (Version 1)
Quarter: 2014Q1

REPORT INFORMATION
  Report Type: Spontaneous
  Country: US (occurrence: US)
  Receive Date: 20140106
  Receipt Date: 20140106
  Transmission Date: 20141002
  Serious: No
  Sender: FDA-Public Use
  Company Number: US-PFIZER INC-2014001210

PATIENT
  Age: 65 Year
  Sex: Male
  Weight: 81.63 kg

DRUGS (3)
  1. LYRICA [Suspect]
     Indication: PROCEDURAL PAIN
     Dosage: 150 MG, 2X/DAY
     Route: 048
     Dates: start: 20140101
  2. LYRICA [Suspect]
     Indication: PAIN IN EXTREMITY
  3. METHYLPREDNISOLONE [Concomitant]
     Dosage: 4 MG, UNK
     Dates: start: 20140101

REACTIONS (1)
  - Off label use [Unknown]
